FAERS Safety Report 8826593 (Version 2)
Quarter: 2012Q4

REPORT INFORMATION
  Report Type: 
  Country: US (occurrence: US)
  Receive Date: 20121005
  Receipt Date: 20121101
  Transmission Date: 20130627
  Serious: Yes (Life-Threatening, Hospitalization)
  Sender: FDA-Public Use
  Company Number: US-GILEAD-2012-0061886

PATIENT
  Age: 47 Year
  Sex: Female

DRUGS (8)
  1. LETAIRIS [Suspect]
     Indication: PULMONARY ARTERIAL HYPERTENSION
     Dosage: 10 mg, QD
     Route: 048
     Dates: start: 20111227, end: 20120727
  2. REVATIO [Concomitant]
     Dosage: 20 mg, UNK
     Dates: start: 20120524
  3. KLOR-CON [Concomitant]
     Dosage: UNK UNK, BID
     Route: 048
     Dates: start: 20111206
  4. FUROSEMIDE [Concomitant]
     Dosage: 20 mg, BID
     Route: 048
     Dates: start: 20111107
  5. COUMADIN                           /00014802/ [Concomitant]
     Dosage: 5 mg, QD
     Route: 048
     Dates: start: 20110914
  6. FISH OIL [Concomitant]
     Dosage: 1000 mg, QD
     Dates: start: 20120604
  7. TYLENOL EXTRA STRENGTH [Concomitant]
     Dosage: 500 mg, QD
     Dates: start: 20120711
  8. SENNA-S                            /00936101/ [Concomitant]
     Dosage: UNK, prn
     Dates: start: 20120712

REACTIONS (7)
  - Pulmonary embolism [Recovering/Resolving]
  - Deep vein thrombosis [Not Recovered/Not Resolved]
  - Thrombophlebitis superficial [Recovering/Resolving]
  - Pulmonary hypertension [Not Recovered/Not Resolved]
  - Right ventricular failure [Not Recovered/Not Resolved]
  - Pleural effusion [Not Recovered/Not Resolved]
  - Cor pulmonale [Unknown]
